FAERS Safety Report 24742630 (Version 1)
Quarter: 2024Q4

REPORT INFORMATION
  Report Type: Spontaneous
  Country: US (occurrence: None)
  Receive Date: 20241214
  Receipt Date: 20241214
  Transmission Date: 20250114
  Serious: Yes (Other)
  Sender: Public
  Company Number: None

PATIENT
  Age: 33 Year
  Sex: Female
  Weight: 83.25 kg

DRUGS (4)
  1. TRINTELLIX [Suspect]
     Active Substance: VORTIOXETINE HYDROBROMIDE
     Indication: Anxiety
     Dosage: FREQUENCY : DAILY;?
     Route: 048
     Dates: start: 20241130, end: 20241207
  2. TRINTELLIX [Suspect]
     Active Substance: VORTIOXETINE HYDROBROMIDE
     Indication: Depression
  3. NEXPLANON [Concomitant]
     Active Substance: ETONOGESTREL
  4. amphetamines (adderall) [Concomitant]

REACTIONS (3)
  - Nausea [None]
  - Vomiting projectile [None]
  - Therapy cessation [None]

NARRATIVE: CASE EVENT DATE: 20241207
